FAERS Safety Report 7753445-6 (Version None)
Quarter: 2011Q3

REPORT INFORMATION
  Report Type: 
  Country: None (occurrence: None)
  Receive Date: 20110915
  Receipt Date: 20110902
  Transmission Date: 20111222
  Serious: Yes (Other)
  Sender: FDA-Public Use
  Company Number: US-ELI_LILLY_AND_COMPANY-US201104004945

PATIENT
  Sex: Female

DRUGS (16)
  1. FORTEO [Suspect]
     Dosage: 20 UG, QD
  2. FORTEO [Suspect]
     Indication: OSTEOPOROSIS
     Dosage: 20 UG, QD
     Dates: start: 20110323
  3. POTASSIUM GLUCONATE TAB [Concomitant]
     Dosage: 595 MG, QD
  4. ASCORBIC ACID [Concomitant]
     Dosage: 9000 MG, QD
  5. HYDROCHLOROTHIAZIDE [Concomitant]
     Dosage: 12.5 MG, QD
  6. CALCIUM +D3 [Concomitant]
     Dosage: UNK, TID
  7. SPIRIVA [Concomitant]
     Dosage: 18 UG, QD
  8. FORTEO [Suspect]
     Dosage: 20 UG, QD
  9. ACTONEL [Concomitant]
  10. FORTEO [Suspect]
     Dosage: 20 UG, QD
  11. SIMVASTATIN [Concomitant]
     Dosage: 40 MG, QD
  12. LISINOPRIL [Concomitant]
     Dosage: 5 MG, QD
     Dates: start: 20110504
  13. BIOTIN [Concomitant]
     Dosage: 5000 UG, QD
  14. GARLIC [Concomitant]
     Dosage: 1250 MG, QD
  15. GUAIFENESIN [Concomitant]
     Dosage: 400 MG, BID
  16. ADVAIR DISKUS 100/50 [Concomitant]
     Dosage: UNK, BID

REACTIONS (5)
  - NAUSEA [None]
  - CARDIAC MURMUR [None]
  - ABDOMINAL DISCOMFORT [None]
  - DIZZINESS [None]
  - HAEMATURIA [None]
